FAERS Safety Report 17869416 (Version 1)
Quarter: 2020Q2

REPORT INFORMATION
  Report Type: Spontaneous
  Country: US (occurrence: US)
  Receive Date: 20200608
  Receipt Date: 20200608
  Transmission Date: 20200714
  Serious: Yes (Hospitalization)
  Sender: FDA-Public Use
  Company Number: US-TEVA-2020-US-1246492

PATIENT

DRUGS (14)
  1. PERODAN [ASPIRIN\OXYCODONE HYDROCHLORIDE\OXYCODONE TEREPHTHALATE]? [Suspect]
     Active Substance: ASPIRIN\OXYCODONE HYDROCHLORIDE\OXYCODONE TEREPHTHALATE
     Dosage: PERODAN
     Route: 064
  2. VICODIN [Suspect]
     Active Substance: ACETAMINOPHEN\HYDROCODONE BITARTRATE
     Route: 064
  3. DURAGESIC [Suspect]
     Active Substance: FENTANYL
     Route: 064
  4. OPANA [Suspect]
     Active Substance: OXYMORPHONE HYDROCHLORIDE
     Route: 064
  5. LORTAB [Suspect]
     Active Substance: ACETAMINOPHEN\HYDROCODONE BITARTRATE
     Route: 064
  6. ACTIQ [Suspect]
     Active Substance: FENTANYL CITRATE
     Indication: PRODUCT USED FOR UNKNOWN INDICATION
     Route: 064
  7. OPANA ER [Suspect]
     Active Substance: OXYMORPHONE HYDROCHLORIDE
     Route: 064
  8. OXYMORPHONE [Suspect]
     Active Substance: OXYMORPHONE
     Route: 064
  9. FENTORA [Suspect]
     Active Substance: FENTANYL CITRATE
     Indication: PRODUCT USED FOR UNKNOWN INDICATION
     Route: 064
  10. PERCOCET [Suspect]
     Active Substance: ACETAMINOPHEN\OXYCODONE HYDROCHLORIDE
     Route: 064
  11. KADIAN [Suspect]
     Active Substance: MORPHINE SULFATE
     Route: 064
  12. OXYCODONE [Suspect]
     Active Substance: OXYCODONE
     Route: 064
  13. NORCO [Suspect]
     Active Substance: ACETAMINOPHEN\HYDROCODONE BITARTRATE
     Route: 064
  14. HYDROMORPHONE [Suspect]
     Active Substance: HYDROMORPHONE
     Route: 064

REACTIONS (9)
  - Tremor [Unknown]
  - Foetal exposure during pregnancy [Unknown]
  - Pain [Unknown]
  - Crying [Unknown]
  - Drug withdrawal syndrome neonatal [Unknown]
  - Opisthotonus [Unknown]
  - Developmental delay [Unknown]
  - Poor feeding infant [Unknown]
  - Drug dependence [Unknown]
